FAERS Safety Report 4802788-4 (Version None)
Quarter: 2005Q4

REPORT INFORMATION
  Report Type: 
  Country: None (occurrence: None)
  Receive Date: 20051013
  Receipt Date: 20051003
  Transmission Date: 20060501
  Serious: Yes (Hospitalization)
  Sender: FDA-Public Use
  Company Number: 2005132453

PATIENT
  Age: 60 Year
  Sex: Male
  Weight: 80 kg

DRUGS (4)
  1. ZOLOFT [Suspect]
     Indication: DEPRESSION
     Dosage: 50 MG
     Dates: start: 19970101
  2. VIAGRA [Suspect]
     Indication: ERECTILE DYSFUNCTION
     Dosage: 100 MG
     Dates: start: 20050921
  3. ALPRAZOLAM [Concomitant]
  4. NORDAZEPAM (NORDAZEPAM) [Concomitant]

REACTIONS (9)
  - DRUG INEFFECTIVE [None]
  - ERECTILE DYSFUNCTION [None]
  - EUPHORIC MOOD [None]
  - GLOSSODYNIA [None]
  - HYPERTROPHY OF TONGUE PAPILLAE [None]
  - PAINFUL ERECTION [None]
  - POLYDIPSIA [None]
  - THIRST [None]
  - URINE FLOW DECREASED [None]
